FAERS Safety Report 24202214 (Version 1)
Quarter: 2024Q3

REPORT INFORMATION
  Report Type: Report from Study
  Country: US (occurrence: US)
  Receive Date: 20240812
  Receipt Date: 20240812
  Transmission Date: 20241016
  Serious: Yes (Hospitalization)
  Sender: ABBVIE
  Company Number: US-ABBVIE-5874324

PATIENT
  Sex: Female

DRUGS (1)
  1. RINVOQ [Suspect]
     Active Substance: UPADACITINIB
     Indication: Product used for unknown indication
     Route: 048
     Dates: start: 20240607

REACTIONS (8)
  - Chest pain [Unknown]
  - Herpes zoster [Recovered/Resolved]
  - Blood electrolytes decreased [Unknown]
  - Urinary tract infection [Recovered/Resolved]
  - Hypotension [Unknown]
  - Diarrhoea [Unknown]
  - Pain in extremity [Unknown]
  - Hyperhidrosis [Unknown]

NARRATIVE: CASE EVENT DATE: 20240101
